FAERS Safety Report 18443093 (Version 3)
Quarter: 2022Q2

REPORT INFORMATION
  Report Type: Spontaneous
  Country: US (occurrence: None)
  Receive Date: 20201030
  Receipt Date: 20220401
  Transmission Date: 20220721
  Serious: Yes (Life-Threatening, Hospitalization, Other)
  Sender: FDA-Public Use
  Company Number: US-ROCHE-2274734

PATIENT
  Age: 68 Year
  Sex: Female
  Weight: 78.542 kg

DRUGS (12)
  1. ESBRIET [Suspect]
     Active Substance: PIRFENIDONE
     Indication: Idiopathic pulmonary fibrosis
     Route: 048
     Dates: start: 20181227
  2. ESBRIET [Suspect]
     Active Substance: PIRFENIDONE
     Route: 048
     Dates: start: 20181228
  3. ESBRIET [Suspect]
     Active Substance: PIRFENIDONE
     Dosage: 3 TIMES PER DAY; ONGOING: YES
     Route: 048
     Dates: start: 201812
  4. ESBRIET [Suspect]
     Active Substance: PIRFENIDONE
     Dosage: TID
     Route: 048
     Dates: start: 20211212
  5. ESBRIET [Suspect]
     Active Substance: PIRFENIDONE
     Indication: Idiopathic pulmonary fibrosis
     Dosage: 3 TABLETS 3 TIMES PER DAY; ONGOING: YES
     Route: 048
     Dates: start: 20181229
  6. LEVOTHROID [Concomitant]
     Active Substance: LEVOTHYROXINE SODIUM
  7. SINGULAIR [Concomitant]
     Active Substance: MONTELUKAST SODIUM
  8. OXYBUTYNIN [Concomitant]
     Active Substance: OXYBUTYNIN
  9. FLOVENT [Concomitant]
     Active Substance: FLUTICASONE PROPIONATE
  10. TIOTROPIUM BROMIDE [Concomitant]
     Active Substance: TIOTROPIUM BROMIDE
  11. ASPIRIN [Concomitant]
     Active Substance: ASPIRIN
  12. ZYRTEC [Concomitant]
     Active Substance: CETIRIZINE HYDROCHLORIDE

REACTIONS (13)
  - Nausea [Recovered/Resolved with Sequelae]
  - Hiatus hernia [Not Recovered/Not Resolved]
  - Diarrhoea [Recovered/Resolved with Sequelae]
  - Vomiting [Unknown]
  - Abdominal pain upper [Unknown]
  - Dyspnoea [Not Recovered/Not Resolved]
  - Constipation [Recovered/Resolved with Sequelae]
  - Gastrooesophageal reflux disease [Recovering/Resolving]
  - Choking [Recovering/Resolving]
  - Abdominal discomfort [Unknown]
  - Contusion [Unknown]
  - Intestinal obstruction [Unknown]
  - Dyspepsia [Unknown]

NARRATIVE: CASE EVENT DATE: 20181201
